FAERS Safety Report 11038509 (Version 6)
Quarter: 2015Q3

REPORT INFORMATION
  Report Type: Report from Study
  Country: US (occurrence: US)
  Receive Date: 20150416
  Receipt Date: 20150810
  Transmission Date: 20151125
  Serious: Yes (Hospitalization, Other)
  Sender: FDA-Public Use
  Company Number: US-AMGEN-USASL2015035916

PATIENT
  Age: 62 Year
  Sex: Female

DRUGS (9)
  1. BLINCYTO [Suspect]
     Active Substance: BLINATUMOMAB
     Indication: ACUTE LYMPHOCYTIC LEUKAEMIA
     Dosage: 9 MUG, QD
     Route: 065
     Dates: start: 20150407, end: 20150426
  2. PREDNISONE                         /00044702/ [Concomitant]
     Active Substance: PREDNISONE
  3. METHOTREXATE [Concomitant]
     Active Substance: METHOTREXATE
  4. MAGNESIUM [Concomitant]
     Active Substance: MAGNESIUM
     Dosage: UNK
  5. L-ASPARAGINASE [Concomitant]
     Active Substance: ASPARAGINASE
  6. DAPSONE. [Concomitant]
     Active Substance: DAPSONE
     Dosage: UNK
  7. MERCAPTOPURINE. [Concomitant]
     Active Substance: MERCAPTOPURINE
  8. VINCRISTINE [Concomitant]
     Active Substance: VINCRISTINE
  9. DOXORUBICIN [Concomitant]
     Active Substance: DOXORUBICIN

REACTIONS (14)
  - Malaise [Recovered/Resolved]
  - Joint swelling [Unknown]
  - Head discomfort [Recovered/Resolved]
  - Aphasia [Recovered/Resolved]
  - Pyrexia [Recovered/Resolved]
  - Dizziness [Unknown]
  - Neutropenia [Not Recovered/Not Resolved]
  - Oedema [Unknown]
  - Tremor [Recovered/Resolved]
  - Incoherent [Unknown]
  - Disorientation [Unknown]
  - Headache [Recovered/Resolved]
  - Leukaemia recurrent [Not Recovered/Not Resolved]
  - Vision blurred [Recovered/Resolved]

NARRATIVE: CASE EVENT DATE: 20150413
